FAERS Safety Report 24220498 (Version 1)
Quarter: 2024Q3

REPORT INFORMATION
  Report Type: Spontaneous
  Country: CA (occurrence: CA)
  Receive Date: 20240818
  Receipt Date: 20240818
  Transmission Date: 20241016
  Serious: Yes (Life-Threatening)
  Sender: AUROBINDO
  Company Number: CA-AUROBINDO-AUR-APL-2024-040572

PATIENT
  Sex: Male

DRUGS (3)
  1. EZETIMIBE [Suspect]
     Active Substance: EZETIMIBE
     Indication: Arteriosclerosis
     Dosage: 10 MILLIGRAM, ONCE A DAY
     Route: 058
  2. PRAVASTATIN [Suspect]
     Active Substance: PRAVASTATIN
     Indication: Arteriosclerosis
     Dosage: 10 MILLIGRAM, ONCE A DAY
     Route: 058
  3. LEQVIO [Suspect]
     Active Substance: INCLISIRAN SODIUM
     Indication: Arteriosclerosis
     Dosage: UNK
     Route: 058

REACTIONS (6)
  - Feeling abnormal [Unknown]
  - Low density lipoprotein increased [Unknown]
  - Dyspnoea [Unknown]
  - Malaise [Unknown]
  - Drug intolerance [Unknown]
  - Drug ineffective [Unknown]
